FAERS Safety Report 18182768 (Version 1)
Quarter: 2020Q3

REPORT INFORMATION
  Report Type: Other
  Country: FR (occurrence: FR)
  Receive Date: 20200821
  Receipt Date: 20200821
  Transmission Date: 20201103
  Serious: No
  Sender: FDA-Public Use
  Company Number: FR-COVIS PHARMA B.V.-2013P1015471

PATIENT
  Age: 66 Year
  Sex: Male

DRUGS (4)
  1. KENZEN [Concomitant]
     Active Substance: CANDESARTAN CILEXETIL
  2. TOCO [Concomitant]
     Active Substance: .ALPHA.-TOCOPHEROL ACETATE, D-
  3. RILUZOLE. [Suspect]
     Active Substance: RILUZOLE
     Indication: AMYOTROPHIC LATERAL SCLEROSIS
     Route: 048
     Dates: start: 20030701, end: 20061030
  4. PREVISCAN [Concomitant]

REACTIONS (1)
  - Pancreatitis acute [Recovered/Resolved]

NARRATIVE: CASE EVENT DATE: 20061006
